FAERS Safety Report 5065345-3 (Version None)
Quarter: 2006Q3

REPORT INFORMATION
  Report Type: 
  Country: None (occurrence: None)
  Receive Date: 20060707
  Receipt Date: 20060118
  Transmission Date: 20061208
  Serious: Yes (Hospitalization)
  Sender: FDA-Public Use
  Company Number: SUS1-2006-00092

PATIENT
  Age: 15 Year
  Sex: Female

DRUGS (5)
  1. PENTASA [Suspect]
     Indication: COLITIS ULCERATIVE
     Dosage: SEE IMAGE
     Route: 048
     Dates: start: 20050501, end: 20051107
  2. PENTASA [Suspect]
     Indication: COLITIS ULCERATIVE
     Dosage: SEE IMAGE
     Route: 048
     Dates: start: 20051108, end: 20051113
  3. LANSOPRAZOLE [Concomitant]
  4. HYOSCINE HBR HYT [Concomitant]
  5. PREDNISOLONE [Concomitant]

REACTIONS (1)
  - PYREXIA [None]
